FAERS Safety Report 6771937-3 (Version None)
Quarter: 2010Q2

REPORT INFORMATION
  Report Type: 
  Country: None (occurrence: None)
  Receive Date: 20100616
  Receipt Date: 20100609
  Transmission Date: 20101027
  Serious: Yes (Other)
  Sender: FDA-Public Use
  Company Number: US-JNJFOC-20100603751

PATIENT
  Sex: Female
  Weight: 73.94 kg

DRUGS (11)
  1. DURAGESIC-100 [Suspect]
     Indication: PAIN
     Dosage: NDC# 50458-035-05
     Route: 062
  2. DURAGESIC-100 [Suspect]
     Dosage: NDC# 50458-093-05
     Route: 062
  3. WARFARIN [Concomitant]
     Indication: ANTICOAGULANT THERAPY
     Dosage: 5 MG (HALF TABLET) ON M-W-F (MONDAY-WEDNESDAY-FRIDAY)
     Route: 048
  4. WARFARIN [Concomitant]
     Dosage: ONE 5 MG TABLET ON TUESDAY-THURSDAY-SATURDAY AND SUNDAY
     Route: 048
  5. LISINOPRIL [Concomitant]
     Indication: BLOOD PRESSURE
     Dosage: 40 MG TWICE DAILY
     Route: 048
  6. ATENOLOL [Concomitant]
     Indication: BLOOD PRESSURE
     Route: 048
  7. AMLODIPINE [Concomitant]
     Indication: BLOOD PRESSURE
     Route: 048
  8. CITALOPRAM HYDROBROMIDE [Concomitant]
     Indication: DEPRESSION
     Dosage: 40 MG (ONE AND 1/2 DAILY)
     Route: 048
  9. METFORMIN [Concomitant]
     Indication: DIABETES MELLITUS
     Route: 048
  10. TEMAZEPAM [Concomitant]
     Indication: INSOMNIA
     Route: 048
  11. CLONAZEPAM [Concomitant]
     Indication: ANXIETY
     Route: 048

REACTIONS (3)
  - SCIATICA [None]
  - SPINAL FRACTURE [None]
  - WRONG TECHNIQUE IN DRUG USAGE PROCESS [None]
